FAERS Safety Report 8470698-X (Version None)
Quarter: 2012Q2

REPORT INFORMATION
  Report Type: 
  Country: None (occurrence: None)
  Receive Date: 20120627
  Receipt Date: 20120621
  Transmission Date: 20120825
  Serious: Yes (Hospitalization)
  Sender: FDA-Public Use
  Company Number: FR-PFIZER INC-2012149586

PATIENT
  Age: 56 Year
  Sex: Female

DRUGS (6)
  1. ZOLOFT [Concomitant]
     Dosage: 1 DF, 1X/DAY
  2. NOCTRAN 10 [Concomitant]
     Dosage: 1 DF, 1X/DAY BEFORE SLEEPING
  3. XANAX [Concomitant]
     Dosage: 1 DF, 1X/DAY
  4. SUTENT [Suspect]
     Indication: RENAL CANCER METASTATIC
     Dosage: NON CONTINUOUS THERAPY
     Dates: start: 20080501
  5. SUTENT [Suspect]
     Dosage: 37.5 MG, 1X/DAY
     Dates: start: 20080901, end: 20081113
  6. PRIMPERAN TAB [Concomitant]
     Dosage: ON DEMAND

REACTIONS (4)
  - NAUSEA [None]
  - VOMITING [None]
  - INTESTINAL OBSTRUCTION [None]
  - DIARRHOEA [None]
